FAERS Safety Report 9187075 (Version 2)
Quarter: 2013Q4

REPORT INFORMATION
  Report Type: Spontaneous
  Country: US (occurrence: US)
  Receive Date: 20130325
  Receipt Date: 20131021
  Transmission Date: 20140711
  Serious: Yes (Hospitalization)
  Sender: FDA-Public Use
  Company Number: US-BAYER-2013-035169

PATIENT
  Age: 36 Year
  Sex: Female
  Weight: 68.03 kg

DRUGS (3)
  1. MIRENA [Suspect]
     Indication: CONTRACEPTION
     Dosage: 20 MCG/24HR, CONT
     Route: 015
     Dates: start: 20051128, end: 20060325
  2. BETADINE [Concomitant]
  3. NUVARING [Concomitant]

REACTIONS (12)
  - Post procedural discomfort [None]
  - Uterine perforation [None]
  - Abdominal pain lower [None]
  - Metrorrhagia [None]
  - Device dislocation [None]
  - Pelvic pain [None]
  - Infection [None]
  - Injury [None]
  - Medical device pain [None]
  - Embedded device [None]
  - Infertility female [None]
  - Depression [None]
